FAERS Safety Report 4522165-3 (Version None)
Quarter: 2004Q4

REPORT INFORMATION
  Report Type: 
  Country: None (occurrence: None)
  Receive Date: 20041209
  Receipt Date: 20041130
  Transmission Date: 20050328
  Serious: Yes (Other)
  Sender: FDA-Public Use
  Company Number: AU-ROCHE-387679

PATIENT

DRUGS (1)
  1. ROACCUTANE [Suspect]
     Indication: ACNE
     Route: 065
     Dates: start: 20040114, end: 20040601

REACTIONS (3)
  - ABORTION INDUCED [None]
  - BENIGN HYDATIDIFORM MOLE [None]
  - DRUG EXPOSURE DURING PREGNANCY [None]
